FAERS Safety Report 15758856 (Version 1)
Quarter: 2018Q4

REPORT INFORMATION
  Report Type: Report from Study
  Country: US (occurrence: US)
  Receive Date: 20181225
  Receipt Date: 20181225
  Transmission Date: 20190205
  Serious: Yes (Other)
  Sender: FDA-Public Use
  Company Number: US-BAXTER-2018BAX031280

PATIENT

DRUGS (9)
  1. METFORMIN [Concomitant]
     Active Substance: METFORMIN HYDROCHLORIDE
     Indication: HYPERCATABOLISM
     Route: 065
  2. U-500 INSULIN [Concomitant]
     Active Substance: INSULIN HUMAN
     Indication: HYPERCATABOLISM
     Route: 065
  3. U-500 INSULIN [Concomitant]
     Active Substance: INSULIN HUMAN
     Indication: DIABETES PROPHYLAXIS
  4. AZATHIOPRINE. [Concomitant]
     Active Substance: AZATHIOPRINE
     Indication: INSULIN RESISTANCE
     Route: 065
  5. METFORMIN [Concomitant]
     Active Substance: METFORMIN HYDROCHLORIDE
     Indication: DIABETES PROPHYLAXIS
  6. CYTOXAN [Suspect]
     Active Substance: CYCLOPHOSPHAMIDE
     Indication: INSULIN RESISTANCE
     Dosage: UNTIL REMISSION WAS ACHIEVED
     Route: 048
  7. DIPHENHYDRAMINE. [Concomitant]
     Active Substance: DIPHENHYDRAMINE
     Indication: PROPHYLAXIS
     Route: 065
  8. RITUXIMAB. [Concomitant]
     Active Substance: RITUXIMAB
     Indication: INSULIN RESISTANCE
     Dosage: 750 MG/M2 BODY SURFACE AREA.?1 CYCLE = 2 INFUSION 2 WEEKS APART
     Route: 041
  9. ACETAMINOPHEN. [Concomitant]
     Active Substance: ACETAMINOPHEN
     Indication: PROPHYLAXIS
     Route: 065

REACTIONS (1)
  - Lung neoplasm malignant [Unknown]
